APPROVED DRUG PRODUCT: ZESTORETIC
Active Ingredient: HYDROCHLOROTHIAZIDE; LISINOPRIL
Strength: 12.5MG;20MG
Dosage Form/Route: TABLET;ORAL
Application: N019888 | Product #001 | TE Code: AB
Applicant: ALMATICA PHARMA LLC
Approved: Sep 20, 1990 | RLD: Yes | RS: No | Type: RX